FAERS Safety Report 9833478 (Version 1)
Quarter: 2014Q1

REPORT INFORMATION
  Report Type: Spontaneous
  Country: US (occurrence: US)
  Receive Date: 20140122
  Receipt Date: 20140122
  Transmission Date: 20141002
  Serious: No
  Sender: FDA-Public Use
  Company Number: US-009507513-1401USA003832

PATIENT
  Age: 56 Year
  Sex: Female

DRUGS (3)
  1. NASONEX [Suspect]
     Indication: NASAL SEPTUM DEVIATION
     Dosage: 50MCG/ ONE SPRAY IN EACH NOSTRIL, ONCE DAILY
     Route: 045
     Dates: start: 201310, end: 20140108
  2. NASONEX [Suspect]
     Indication: NASAL CONGESTION
  3. LEVOTHYROXINE SODIUM [Concomitant]
     Route: 048

REACTIONS (12)
  - Facial pain [Not Recovered/Not Resolved]
  - Rhinitis [Not Recovered/Not Resolved]
  - Abnormal sensation in eye [Not Recovered/Not Resolved]
  - Vulvovaginal pruritus [Not Recovered/Not Resolved]
  - Candida infection [Not Recovered/Not Resolved]
  - Gingival pain [Not Recovered/Not Resolved]
  - Rhinalgia [Not Recovered/Not Resolved]
  - Oropharyngeal discomfort [Not Recovered/Not Resolved]
  - Head discomfort [Not Recovered/Not Resolved]
  - Underdose [Unknown]
  - Inappropriate schedule of drug administration [Unknown]
  - Off label use [Unknown]
